FAERS Safety Report 20803311 (Version 1)
Quarter: 2022Q2

REPORT INFORMATION
  Report Type: Spontaneous
  Country: BR (occurrence: BR)
  Receive Date: 20220509
  Receipt Date: 20220509
  Transmission Date: 20220721
  Serious: Yes (Hospitalization, Other)
  Sender: FDA-Public Use
  Company Number: BR-BRISTOL-MYERS SQUIBB COMPANY-2022-033245

PATIENT
  Sex: Female
  Weight: 53 kg

DRUGS (1)
  1. REVLIMID [Suspect]
     Active Substance: LENALIDOMIDE
     Indication: Plasma cell myeloma
     Dosage: DOSE : 5 MG;     FREQ : DAILY - TAKE 21 DAYS, PAUSE 7 DAYS (28 DAY CYCLE)
     Route: 065
     Dates: start: 2017

REACTIONS (5)
  - Spinal cord compression [Unknown]
  - Spinal fracture [Unknown]
  - Illness [Unknown]
  - Fall [Unknown]
  - Paraplegia [Unknown]
